FAERS Safety Report 9101831 (Version 1)
Quarter: 2013Q1

REPORT INFORMATION
  Report Type: Spontaneous
  Country: US (occurrence: US)
  Receive Date: 20130218
  Receipt Date: 20130218
  Transmission Date: 20140127
  Serious: No
  Sender: FDA-Public Use
  Company Number: US-MYLANLABS-2012S1016173

PATIENT
  Sex: Female

DRUGS (2)
  1. ALPRAZOLAM [Suspect]
     Indication: PANIC ATTACK
     Route: 060
  2. ALPRAZOLAM [Suspect]
     Indication: PANIC ATTACK
     Route: 048

REACTIONS (2)
  - Incorrect route of drug administration [Not Recovered/Not Resolved]
  - No adverse event [Not Recovered/Not Resolved]
